FAERS Safety Report 6073146-2 (Version None)
Quarter: 2009Q1

REPORT INFORMATION
  Report Type: 
  Country: None (occurrence: None)
  Receive Date: 20090206
  Receipt Date: 20090203
  Transmission Date: 20090719
  Serious: Yes (Hospitalization, Other)
  Sender: FDA-Public Use
  Company Number: GXKR2007DE04911

PATIENT
  Age: 77 Year
  Sex: Female

DRUGS (9)
  1. HYDROCHLOROTHIAZIDE [Suspect]
     Dosage: ORAL
     Route: 048
     Dates: end: 20060622
  2. SULPIRIDE (SULPIRIDE) [Suspect]
     Dosage: 50 MG, ORAL, 100 MG, ORAL, 150 MG, ORAL
     Route: 048
     Dates: start: 20060602, end: 20060605
  3. SULPIRIDE (SULPIRIDE) [Suspect]
     Dosage: 50 MG, ORAL, 100 MG, ORAL, 150 MG, ORAL
     Route: 048
     Dates: start: 20060606, end: 20060608
  4. SULPIRIDE (SULPIRIDE) [Suspect]
     Dosage: 50 MG, ORAL, 100 MG, ORAL, 150 MG, ORAL
     Route: 048
     Dates: start: 20060609, end: 20060626
  5. ZOLOFT [Suspect]
     Dosage: 100 MG, ORAL, 50 MG, ORAL, 25 MG, ORAL
     Route: 048
     Dates: start: 20060603, end: 20060606
  6. ZOLOFT [Suspect]
     Dosage: 100 MG, ORAL, 50 MG, ORAL, 25 MG, ORAL
     Route: 048
     Dates: start: 20060607, end: 20060612
  7. VESIDIL 2.5 PLUS (HYDROCHLOROTHIAZIDE, RAMIPRIL) [Suspect]
     Dosage: 5 MG, ORAL
     Route: 048
  8. ZOPICLONE (ZOPICLONE) [Concomitant]
  9. METOPROLOL SUCCINATE [Concomitant]

REACTIONS (4)
  - ANKLE FRACTURE [None]
  - FALL [None]
  - HYPONATRAEMIA [None]
  - TRAUMATIC FRACTURE [None]
